FAERS Safety Report 9367007 (Version 2)
Quarter: 2013Q3

REPORT INFORMATION
  Report Type: Spontaneous
  Country: US (occurrence: US)
  Receive Date: 20130625
  Receipt Date: 20130823
  Transmission Date: 20140515
  Serious: Yes (Hospitalization, Other)
  Sender: FDA-Public Use
  Company Number: US-BAYER-2013-077932

PATIENT
  Age: 25 Year
  Sex: Female

DRUGS (15)
  1. YASMIN [Suspect]
     Indication: CONTRACEPTION
     Dosage: UNK
     Dates: start: 2001, end: 2008
  2. YASMIN [Suspect]
     Indication: CONTRACEPTION
     Dosage: UNK
     Dates: start: 2004, end: 200705
  3. YASMIN [Suspect]
     Indication: CONTRACEPTION
     Dosage: UNK
     Dates: start: 2001, end: 2003
  4. YASMIN [Suspect]
     Indication: CONTRACEPTION
     Dosage: UNK
     Dates: start: 1996, end: 2008
  5. MULTIVITAMIN [Concomitant]
     Dosage: 1 DF A DAY
     Dates: start: 2000
  6. PAROXETINE [Concomitant]
     Dosage: 10 MG, UNK
     Dates: start: 20070207
  7. HYDROCODONE W/APAP [Concomitant]
     Dosage: 7.5-500
     Dates: start: 20070222
  8. LORAZEPAM [Concomitant]
     Dosage: 1 MG, UNK
     Dates: start: 20070227
  9. AZITHROMYCIN [Concomitant]
     Dosage: 500 MG, UNK
     Dates: start: 20070227
  10. TOPAMAX [Concomitant]
     Dosage: 50 MG, UNK
     Dates: start: 20070325
  11. TOPAMAX [Concomitant]
     Dosage: 50 MG, UNK
     Dates: start: 20070423
  12. TOPAMAX [Concomitant]
     Dosage: 50 MG, UNK
     Dates: start: 20071004
  13. TOPAMAX [Concomitant]
     Dosage: 50 MG, UNK
     Dates: start: 20071105
  14. TOPAMAX [Concomitant]
     Dosage: 50 MG, UNK
     Dates: start: 20071206
  15. HYDROCORT [HYDROCORTISONE ACETATE,NEOMYCIN SULFATE] [Concomitant]
     Dosage: 2 %, UNK
     Dates: start: 20070524

REACTIONS (14)
  - Pulmonary embolism [Recovered/Resolved]
  - Transverse sinus thrombosis [None]
  - Pain [Recovered/Resolved]
  - Injury [Recovered/Resolved]
  - General physical health deterioration [Recovered/Resolved]
  - Anxiety [None]
  - Emotional distress [None]
  - Anhedonia [None]
  - Pain [None]
  - Cholelithiasis [None]
  - Dyspnoea [Recovered/Resolved]
  - Dizziness [None]
  - Loss of consciousness [None]
  - Fear of disease [None]
